FAERS Safety Report 7757741-8 (Version None)
Quarter: 2011Q3

REPORT INFORMATION
  Report Type: 
  Country: None (occurrence: None)
  Receive Date: 20110916
  Receipt Date: 20110328
  Transmission Date: 20111222
  Serious: No
  Sender: FDA-Public Use
  Company Number: US-ALLERGAN-1104324US

PATIENT
  Age: 53 Year
  Sex: Male
  Weight: 90.7 kg

DRUGS (2)
  1. ACULAR [Suspect]
     Indication: HYPERSENSITIVITY
     Dosage: UNK
  2. XALATAN [Suspect]
     Indication: PRODUCT USED FOR UNKNOWN INDICATION
     Dosage: 1 GTT, QHS
     Route: 047

REACTIONS (4)
  - DRY EYE [None]
  - VISION BLURRED [None]
  - VITREOUS FLOATERS [None]
  - OCULAR HYPERAEMIA [None]
